FAERS Safety Report 9701413 (Version 3)
Quarter: 2015Q3

REPORT INFORMATION
  Report Type: Spontaneous
  Country: US (occurrence: US)
  Receive Date: 20131121
  Receipt Date: 20150803
  Transmission Date: 20151125
  Serious: No
  Sender: FDA-Public Use
  Company Number: US-GILEAD-2008-0016890

PATIENT
  Age: 50 Year
  Sex: Female
  Weight: 69.85 kg

DRUGS (11)
  1. ZOLOFT [Concomitant]
     Active Substance: SERTRALINE HYDROCHLORIDE
     Route: 048
  2. PANTOPRAZOLE [Concomitant]
     Active Substance: PANTOPRAZOLE SODIUM
     Route: 048
  3. REVATIO [Concomitant]
     Active Substance: SILDENAFIL CITRATE
     Route: 048
  4. MAGNESIUM [Concomitant]
     Active Substance: MAGNESIUM
     Route: 048
  5. ASA [Concomitant]
     Active Substance: ASPIRIN
     Route: 048
  6. CENTRUM SILVER [Concomitant]
     Active Substance: VITAMINS
     Route: 048
  7. LETAIRIS [Suspect]
     Active Substance: AMBRISENTAN
     Indication: PULMONARY ARTERIAL HYPERTENSION
     Route: 048
     Dates: start: 20080522
  8. OXYGEN. [Concomitant]
     Active Substance: OXYGEN
     Route: 055
  9. LASIX [Concomitant]
     Active Substance: FUROSEMIDE
     Route: 048
  10. TRAZODONE [Concomitant]
     Active Substance: TRAZODONE HYDROCHLORIDE
     Route: 048
  11. SENNA LAXATI [Concomitant]
     Route: 048

REACTIONS (5)
  - Epistaxis [None]
  - Insomnia [None]
  - Nasal congestion [Not Recovered/Not Resolved]
  - Oropharyngeal pain [None]
  - Peripheral swelling [None]

NARRATIVE: CASE EVENT DATE: 20080529
